FAERS Safety Report 9775616 (Version 1)
Quarter: 2013Q4

REPORT INFORMATION
  Report Type: Spontaneous
  Country: JP (occurrence: None)
  Receive Date: 20131218
  Receipt Date: 20131218
  Transmission Date: 20140711
  Serious: Yes (Death, Hospitalization)
  Sender: FDA-Public Use
  Company Number: CO-OR-JP-2013-231

PATIENT
  Age: 79 Year
  Sex: Female

DRUGS (2)
  1. PREDNISOLONE [Suspect]
     Indication: PARANEOPLASTIC PEMPHIGUS
     Route: 048
  2. METHYLPREDNISOLONE [Suspect]
     Indication: PARANEOPLASTIC PEMPHIGUS

REACTIONS (4)
  - Drug ineffective [None]
  - Skin lesion [None]
  - Respiratory failure [None]
  - Obliterative bronchiolitis [None]
